FAERS Safety Report 8530144-4 (Version None)
Quarter: 2012Q3

REPORT INFORMATION
  Report Type: 
  Country: None (occurrence: None)
  Receive Date: 20120723
  Receipt Date: 20120719
  Transmission Date: 20120928
  Serious: Yes (Hospitalization)
  Sender: FDA-Public Use
  Company Number: PHHY2012AU055629

PATIENT
  Sex: Male

DRUGS (2)
  1. CLOZARIL [Suspect]
     Dosage: 200 MG, NOCTE
     Dates: start: 20120626, end: 20120708
  2. CLOZARIL [Suspect]
     Dosage: 500 MG, UNK
     Dates: start: 20051109

REACTIONS (5)
  - MALAISE [None]
  - ANTIPSYCHOTIC DRUG LEVEL INCREASED [None]
  - PAIN IN EXTREMITY [None]
  - PYREXIA [None]
  - CELLULITIS [None]
